FAERS Safety Report 7419816-2 (Version None)
Quarter: 2011Q2

REPORT INFORMATION
  Report Type: 
  Country: None (occurrence: None)
  Receive Date: 20110418
  Receipt Date: 20110414
  Transmission Date: 20111010
  Serious: Yes (Death, Hospitalization)
  Sender: FDA-Public Use
  Company Number: US-B.I. PHARMACEUTICALS,INC./RIDGEFIELD-2011-BP-06884BP

PATIENT
  Age: 79 Year
  Sex: Male

DRUGS (2)
  1. METOPROLOL [Concomitant]
     Dosage: 50 MG
  2. PRADAXA [Suspect]
     Indication: ATRIAL FIBRILLATION
     Dates: start: 20101208

REACTIONS (3)
  - SYNCOPE [None]
  - DEATH [None]
  - CHEST PAIN [None]
